FAERS Safety Report 4434774-0 (Version None)
Quarter: 2004Q3

REPORT INFORMATION
  Report Type: 
  Country: None (occurrence: None)
  Receive Date: 20040827
  Receipt Date: 20040817
  Transmission Date: 20050211
  Serious: Yes (Death, Other)
  Sender: FDA-Public Use
  Company Number: US-BRISTOL-MYERS SQUIBB COMPANY-12673794

PATIENT

DRUGS (3)
  1. CARMUSTINE [Suspect]
     Indication: BRAIN STEM GLIOMA
     Dosage: UP TO 50MG/M^2 DAYS 1,3 X2 CYCLES. POSTRADIATION DOSE=200MG/M^2 Q 8WKS X4 CYCLES
     Route: 042
  2. CISPLATIN [Concomitant]
     Indication: BRAIN STEM GLIOMA
     Dosage: PREIRRADIATION ON DAYS 1,3,29,31.
     Route: 042
  3. RADIATION THERAPY [Concomitant]
     Indication: BRAIN STEM GLIOMA
     Dosage: TOTAL DOSE= 4800 CGY

REACTIONS (4)
  - LEUKOPENIA [None]
  - PULMONARY EMBOLISM [None]
  - PULMONARY TOXICITY [None]
  - THROMBOCYTOPENIA [None]
